FAERS Safety Report 17809548 (Version 1)
Quarter: 2020Q2

REPORT INFORMATION
  Report Type: Report from Study
  Country: IE (occurrence: IE)
  Receive Date: 20200521
  Receipt Date: 20200521
  Transmission Date: 20200714
  Serious: Yes (Death, Hospitalization, Other)
  Sender: FDA-Public Use
  Company Number: IE-AMGEN-IRLSL2020079468

PATIENT
  Age: 88 Year
  Sex: Male

DRUGS (18)
  1. ARANESP [Suspect]
     Active Substance: DARBEPOETIN ALFA
     Indication: PRODUCT USED FOR UNKNOWN INDICATION
     Dosage: 100 MICROGRAM, QMO
     Route: 058
     Dates: start: 20190412, end: 20200507
  2. BURINEX [Concomitant]
     Active Substance: BUMETANIDE
     Dosage: 1 MILLIGRAM, QD
     Route: 050
  3. STUGERON [Concomitant]
     Active Substance: CINNARIZINE
     Dosage: 25 MILLIGRAM, TID
     Route: 050
  4. DIAGLYC [Concomitant]
     Dosage: 30 MILLIGRAM, QD
     Route: 050
  5. GLUCOPHAGE [METFORMIN] [Concomitant]
     Dosage: 1 GRAM, BID
     Route: 050
  6. ASPIRIN [ACETYLSALICYLIC ACID] [Concomitant]
     Active Substance: ASPIRIN
     Dosage: 75 MILLIGRAM, QD
     Route: 050
  7. ONE ALPHA [Concomitant]
     Active Substance: ALFACALCIDOL
     Dosage: 0.25 MICROGRAM, QD
     Route: 050
  8. ANTEPSIN [Concomitant]
     Active Substance: SUCRALFATE
     Dosage: 1 GRAM, TID
     Route: 050
  9. CRESTOR [Concomitant]
     Active Substance: ROSUVASTATIN CALCIUM
     Dosage: 10 MILLIGRAM, QD
     Route: 050
  10. VERSATIS [Concomitant]
     Active Substance: LIDOCAINE
     Dosage: 1 MILLIGRAM, QD
     Route: 050
  11. OMACOR [Concomitant]
     Active Substance: OMEGA-3-ACID ETHYL ESTERS
     Dosage: 1000 MILLIGRAM, QD
     Route: 050
  12. OMESAR [OMEPRAZOLE] [Concomitant]
     Dosage: 40 MILLIGRAM, QD
     Route: 050
  13. NEXIUM I.V. [Concomitant]
     Active Substance: ESOMEPRAZOLE SODIUM
     Dosage: 40 MILLIGRAM, QD
     Route: 050
  14. LANTUS [Concomitant]
     Active Substance: INSULIN GLARGINE
     Dosage: 38 UNIT, QD
     Route: 050
  15. ALLOPURINOL. [Concomitant]
     Active Substance: ALLOPURINOL
     Dosage: 100 MILLIGRAM, QD
     Route: 050
  16. CARDURA [Concomitant]
     Active Substance: DOXAZOSIN MESYLATE
     Dosage: 1 MILLIGRAM
     Route: 050
  17. LERCANIDIPINE [LERCANIDIPINE HYDROCHLORIDE] [Concomitant]
     Active Substance: LERCANIDIPINE HYDROCHLORIDE
     Dosage: 10 MILLIGRAM, BID
     Route: 050
  18. NEBILET [Concomitant]
     Active Substance: NEBIVOLOL
     Dosage: 5 MILLIGRAM, QD
     Route: 050

REACTIONS (5)
  - Cellulitis [Unknown]
  - Unevaluable event [Unknown]
  - Death [Fatal]
  - Oedema [Unknown]
  - Peripheral swelling [Unknown]

NARRATIVE: CASE EVENT DATE: 20200507
